FAERS Safety Report 6046251-4 (Version None)
Quarter: 2009Q1

REPORT INFORMATION
  Report Type: 
  Country: None (occurrence: None)
  Receive Date: 20090122
  Receipt Date: 20090112
  Transmission Date: 20090719
  Serious: No
  Sender: FDA-Public Use
  Company Number: DE-JNJFOC-20081202594

PATIENT
  Age: 62 Year
  Sex: Male
  Weight: 70 kg

DRUGS (4)
  1. REMICADE [Suspect]
     Route: 042
  2. REMICADE [Suspect]
     Indication: RHEUMATOID ARTHRITIS
     Route: 042
  3. PREDNISOLONE [Concomitant]
     Indication: ARTHRITIS
  4. METHOTREXATE [Concomitant]
     Indication: ARTHRITIS

REACTIONS (1)
  - BURSITIS [None]
